FAERS Safety Report 8854879 (Version 2)
Quarter: 2012Q4

REPORT INFORMATION
  Report Type: 
  Country: CA (occurrence: CA)
  Receive Date: 20121023
  Receipt Date: 20121128
  Transmission Date: 20130627
  Serious: Yes (Hospitalization, Other)
  Sender: FDA-Public Use
  Company Number: CA-AMGEN-CANSP2012065583

PATIENT
  Age: 33 Year
  Sex: Female
  Weight: 76 kg

DRUGS (4)
  1. NEUPOGEN [Suspect]
     Indication: PRODUCT USED FOR UNKNOWN INDICATION
     Dosage: 300 mg, daily
     Route: 058
     Dates: start: 20121003, end: 20121011
  2. CYCLOPHOSPHAMIDE [Suspect]
     Indication: CHEMOTHERAPY
     Dosage: 900 mg, q21days
     Route: 042
     Dates: start: 20121002
  3. DOCETAXEL [Suspect]
     Indication: CHEMOTHERAPY
     Dosage: 136 mg, q21days
     Route: 042
     Dates: start: 20121002
  4. DOXORUBICIN [Suspect]
     Indication: CHEMOTHERAPY
     Dosage: 90 mg, q21days
     Route: 042
     Dates: start: 20121002

REACTIONS (2)
  - Drug ineffective [Recovered/Resolved]
  - Febrile neutropenia [Recovered/Resolved]
